FAERS Safety Report 6124161-1 (Version None)
Quarter: 2009Q1

REPORT INFORMATION
  Report Type: 
  Country: None (occurrence: None)
  Receive Date: 20090319
  Receipt Date: 20090309
  Transmission Date: 20090719
  Serious: Yes (Other)
  Sender: FDA-Public Use
  Company Number: CA-JNJFOC-20090302486

PATIENT
  Sex: Female

DRUGS (1)
  1. REMICADE [Suspect]
     Indication: DRUG USE FOR UNKNOWN INDICATION
     Dosage: ^STOPPED APPROXIMATELY 4 YEARS AGO^
     Route: 042

REACTIONS (5)
  - AMNESIA [None]
  - MUSCLE SPASMS [None]
  - SWOLLEN TONGUE [None]
  - TREMOR [None]
  - VISUAL ACUITY REDUCED [None]
